FAERS Safety Report 14540634 (Version 1)
Quarter: 2018Q1

REPORT INFORMATION
  Report Type: Spontaneous
  Country: GB (occurrence: GB)
  Receive Date: 20180216
  Receipt Date: 20180216
  Transmission Date: 20180509
  Serious: Yes (Other)
  Sender: FDA-Public Use
  Company Number: GB-OTSUKA-DJ20070428

PATIENT
  Age: 24 Year
  Sex: Male
  Weight: 70 kg

DRUGS (4)
  1. ABILIFY [Suspect]
     Active Substance: ARIPIPRAZOLE
     Indication: SCHIZOPHRENIA
     Dosage: 10 MG, UNK
     Route: 048
     Dates: start: 20060515
  2. QUETIAPINE. [Concomitant]
     Active Substance: QUETIAPINE
     Indication: PRODUCT USED FOR UNKNOWN INDICATION
     Dosage: 750 MG, UNK
     Route: 065
     Dates: start: 20060527
  3. ABILIFY [Suspect]
     Active Substance: ARIPIPRAZOLE
     Dosage: 15 MG, UNK
     Route: 048
     Dates: end: 20060526
  4. RISPERIDON [Concomitant]
     Active Substance: RISPERIDONE
     Indication: PRODUCT USED FOR UNKNOWN INDICATION
     Dosage: UNK
     Route: 048
     Dates: start: 20040927, end: 20060103

REACTIONS (3)
  - Drug ineffective [Unknown]
  - Galactorrhoea [Recovering/Resolving]
  - Blood prolactin increased [Recovering/Resolving]

NARRATIVE: CASE EVENT DATE: 200612
